FAERS Safety Report 9163265 (Version 3)
Quarter: 2013Q2

REPORT INFORMATION
  Report Type: Spontaneous
  Country: JP (occurrence: JP)
  Receive Date: 20130314
  Receipt Date: 20130404
  Transmission Date: 20140414
  Serious: Yes (Hospitalization)
  Sender: FDA-Public Use
  Company Number: JP-GLAXOSMITHKLINE-B0873450A

PATIENT
  Age: 81 Year
  Sex: Female

DRUGS (5)
  1. LAMICTAL [Suspect]
     Indication: CONVULSION
     Dosage: 25MG PER DAY
     Route: 048
     Dates: start: 20130215, end: 20130225
  2. SELENICA-R [Concomitant]
     Indication: CONVULSION
     Route: 048
     Dates: start: 20120710, end: 20130215
  3. SEROQUEL [Concomitant]
     Indication: SCHIZOPHRENIA
     Dosage: 25MG PER DAY
     Route: 048
     Dates: start: 20120710
  4. ZYPREXA [Concomitant]
     Indication: SCHIZOPHRENIA
     Dosage: 2.5MG PER DAY
     Route: 048
     Dates: start: 20120710
  5. MEMARY [Concomitant]
     Indication: DEMENTIA OF THE ALZHEIMER^S TYPE, UNCOMPLICATED
     Dosage: 5MG PER DAY
     Route: 048
     Dates: start: 20130221, end: 20130225

REACTIONS (3)
  - Dementia [Unknown]
  - Eczema [Recovering/Resolving]
  - Asthenia [Recovering/Resolving]
